FAERS Safety Report 8821349 (Version 1)
Quarter: 2012Q4

REPORT INFORMATION
  Report Type: 
  Country: NO (occurrence: NO)
  Receive Date: 20121002
  Receipt Date: 20121002
  Transmission Date: 20130627
  Serious: Yes (Hospitalization, Other)
  Sender: FDA-Public Use
  Company Number: NO-BAXTER-2012BAX016819

PATIENT
  Age: 67 Year
  Sex: Female

DRUGS (4)
  1. EXTRANEAL PERITONEAL [Suspect]
     Indication: PERITONEAL DIALYSIS
     Route: 033
  2. NUTRINEAL PD4 [Suspect]
     Indication: PERITONEAL DIALYSIS
     Route: 033
  3. PHYSIONEAL [Suspect]
     Indication: PERITONEAL DIALYSIS
     Route: 033
     Dates: start: 20120910
  4. PHYSIONEAL [Suspect]
     Route: 033
     Dates: start: 20120910

REACTIONS (2)
  - Peritonitis [Not Recovered/Not Resolved]
  - Device related infection [Unknown]
